FAERS Safety Report 8816345 (Version 1)
Quarter: 2012Q4

REPORT INFORMATION
  Report Type: Spontaneous
  Country: US (occurrence: None)
  Receive Date: 20120928
  Receipt Date: 20120928
  Transmission Date: 20130627
  Serious: Yes (Life-Threatening, Hospitalization)
  Sender: FDA-Public Use
  Company Number: None

PATIENT
  Age: 67 Year
  Sex: Female
  Weight: 90.72 kg

DRUGS (1)
  1. MINOCYCLINE [Suspect]
     Indication: EYE INFECTION
     Dosage: 100 MG Capsule 1 pill 2x day Cap
     Dates: start: 20120817

REACTIONS (1)
  - Convulsion [None]
